FAERS Safety Report 12783744 (Version 3)
Quarter: 2016Q4

REPORT INFORMATION
  Report Type: Report from Study
  Country: DE (occurrence: DE)
  Receive Date: 20160927
  Receipt Date: 20161122
  Transmission Date: 20170207
  Serious: Yes (Hospitalization)
  Sender: FDA-Public Use
  Company Number: DE-CELGENEUS-DEU-2016092556

PATIENT
  Age: 82 Year
  Sex: Female
  Weight: 82 kg

DRUGS (14)
  1. PANTOZOL [Concomitant]
     Active Substance: PANTOPRAZOLE SODIUM
     Indication: PRODUCT USED FOR UNKNOWN INDICATION
     Route: 065
     Dates: start: 20151203
  2. BISOPROLOL [Concomitant]
     Active Substance: BISOPROLOL
     Indication: PRODUCT USED FOR UNKNOWN INDICATION
     Dosage: 16 MILLIGRAM
     Route: 065
     Dates: start: 20151203
  3. CITALOPRAM [Concomitant]
     Active Substance: CITALOPRAM HYDROBROMIDE
     Indication: PROPHYLAXIS
     Route: 048
     Dates: start: 20161005
  4. ZOMETA [Concomitant]
     Active Substance: ZOLEDRONIC ACID
     Indication: PROPHYLAXIS
     Dosage: 1 MILLIGRAM
     Route: 041
     Dates: start: 20160519
  5. RAMIPRIL. [Concomitant]
     Active Substance: RAMIPRIL
     Indication: PRODUCT USED FOR UNKNOWN INDICATION
     Route: 065
     Dates: start: 20151203
  6. DEXAMETHASONE. [Suspect]
     Active Substance: DEXAMETHASONE
     Indication: PLASMA CELL MYELOMA
     Route: 065
     Dates: start: 20160718, end: 20160830
  7. REVLIMID [Suspect]
     Active Substance: LENALIDOMIDE
     Indication: PLASMA CELL MYELOMA
     Route: 048
     Dates: start: 20160718, end: 20160807
  8. TAVOR (LORAZEPAM) [Concomitant]
     Active Substance: LORAZEPAM
     Indication: PRODUCT USED FOR UNKNOWN INDICATION
     Route: 048
     Dates: start: 20161005
  9. ZOMETA [Concomitant]
     Active Substance: ZOLEDRONIC ACID
     Route: 041
     Dates: start: 20160920, end: 201610
  10. FOLICOMBIN [Concomitant]
     Indication: PROPHYLAXIS
     Dosage: 9999.99 MILLILITER
     Route: 048
     Dates: start: 20161005
  11. BISOPROLOL [Concomitant]
     Active Substance: BISOPROLOL
     Indication: PROPHYLAXIS
     Route: 048
     Dates: start: 20161005
  12. PANTOZOL [Concomitant]
     Active Substance: PANTOPRAZOLE SODIUM
     Indication: PROPHYLAXIS
     Route: 048
     Dates: start: 20161005
  13. CITALOPRAM [Concomitant]
     Active Substance: CITALOPRAM HYDROBROMIDE
     Route: 065
     Dates: start: 20151203
  14. TAVOR (LORAZEPAM) [Concomitant]
     Active Substance: LORAZEPAM
     Indication: PROPHYLAXIS

REACTIONS (2)
  - Back pain [Not Recovered/Not Resolved]
  - C-reactive protein abnormal [Not Recovered/Not Resolved]

NARRATIVE: CASE EVENT DATE: 20160905
